FAERS Safety Report 20687919 (Version 15)
Quarter: 2023Q4

REPORT INFORMATION
  Report Type: Spontaneous
  Country: CA (occurrence: CA)
  Receive Date: 20220408
  Receipt Date: 20231110
  Transmission Date: 20240109
  Serious: Yes (Hospitalization, Other)
  Sender: FDA-Public Use
  Company Number: CA-CELLTRION INC.-2022CA004023

PATIENT

DRUGS (19)
  1. INFLECTRA [Suspect]
     Active Substance: INFLIXIMAB-DYYB
     Indication: Crohn^s disease
     Dosage: 1 DF, 1 DOSE 10 MG/KG, PLUS 5 MG/KG EVERY 8 WEEKS
     Route: 042
  2. INFLECTRA [Suspect]
     Active Substance: INFLIXIMAB-DYYB
     Dosage: 1 DF, AT HOSPITAL
     Route: 042
     Dates: start: 20220120
  3. INFLECTRA [Suspect]
     Active Substance: INFLIXIMAB-DYYB
     Dosage: 5 MG/KG, REINDUCE, THEN MAINTENANCE
     Route: 042
     Dates: start: 20220407, end: 20220514
  4. INFLECTRA [Suspect]
     Active Substance: INFLIXIMAB-DYYB
     Dosage: 5 MG/KG, REINDUCE, THEN MAINTENANCE
     Route: 042
     Dates: start: 20220714
  5. INFLECTRA [Suspect]
     Active Substance: INFLIXIMAB-DYYB
     Dosage: 5 MG/KG, REINDUCE, THEN MAINTENANCE (EVERY 6 WEEK)
     Route: 042
     Dates: start: 20220824
  6. INFLECTRA [Suspect]
     Active Substance: INFLIXIMAB-DYYB
     Dosage: 5 MG/KG, EVERY 6 WEEKS
     Route: 042
     Dates: start: 20220824
  7. INFLECTRA [Suspect]
     Active Substance: INFLIXIMAB-DYYB
     Dosage: 5 MG/KG EVERY 6 WEEKS
     Route: 042
     Dates: start: 20221116
  8. INFLECTRA [Suspect]
     Active Substance: INFLIXIMAB-DYYB
     Dosage: 10 MG/KG, Q 0, 2, 6 WEEKS, THEN Q 8 WEEKS
     Route: 042
     Dates: start: 20230107
  9. INFLECTRA [Suspect]
     Active Substance: INFLIXIMAB-DYYB
     Dosage: 10 MG/KG, (REINDUCTION) W2 DOSE,Q 0, 2, 6 WEEKS, THEN Q 8 WEEKS
     Route: 042
     Dates: start: 20230119
  10. INFLECTRA [Suspect]
     Active Substance: INFLIXIMAB-DYYB
     Dosage: 10 MG/KG, (REINDUCTION) W2 DOSE,Q 0, 2, 6 WEEKS, THEN Q 8 WEEKS
     Route: 042
     Dates: start: 20230119
  11. INFLECTRA [Suspect]
     Active Substance: INFLIXIMAB-DYYB
     Dosage: 10 MG/KG, Q 0, 2, 6 WEEKS, THEN Q 8 WEEKS
     Route: 042
     Dates: start: 20230413
  12. INFLECTRA [Suspect]
     Active Substance: INFLIXIMAB-DYYB
     Dosage: 10 MG/KG EVERY 4 WEEKS
     Route: 042
     Dates: start: 20230511
  13. INFLECTRA [Suspect]
     Active Substance: INFLIXIMAB-DYYB
     Dosage: 10 MG/KG EVERY 4 WEEKS
     Route: 042
     Dates: start: 20230707
  14. INFLECTRA [Suspect]
     Active Substance: INFLIXIMAB-DYYB
     Dosage: 700 MG, 4 WEEKS AND 5 DAYS
     Route: 042
     Dates: start: 20230809
  15. ACETAMINOPHEN [Concomitant]
     Active Substance: ACETAMINOPHEN
     Dosage: 1 DF, AS NEEDED
     Route: 065
  16. PREDNISONE [Concomitant]
     Active Substance: PREDNISONE
     Dosage: 1 DF, DOSAGE INFORMATION NOT AVAILABLE
     Route: 065
  17. MESALAMINE [Concomitant]
     Active Substance: MESALAMINE
     Dosage: FOR 6 WEEKS
     Route: 023
     Dates: start: 20230731
  18. VITALUX [ASCORBIC ACID;BETACAROTENE;MANGANESE GLUCONATE;NICOTINAMIDE;S [Concomitant]
     Dosage: 1 DF DOSAGE INFORMATION NOT AVAILABLE
     Route: 065
  19. VITAMIN C [Concomitant]
     Active Substance: ASCORBIC ACID
     Dosage: 1 DF, DOSAGE INFORMATION NOT AVAILABLE
     Route: 065

REACTIONS (11)
  - Intestinal resection [Unknown]
  - Gastrointestinal perforation [Unknown]
  - Condition aggravated [Unknown]
  - Anal inflammation [Unknown]
  - Stomatitis [Unknown]
  - Stoma complication [Not Recovered/Not Resolved]
  - Secretion discharge [Not Recovered/Not Resolved]
  - Off label use [Unknown]
  - Off label use [Unknown]
  - Intentional product use issue [Unknown]
  - Inappropriate schedule of product administration [Unknown]

NARRATIVE: CASE EVENT DATE: 20220801
